FAERS Safety Report 8949490 (Version 2)
Quarter: 2012Q4

REPORT INFORMATION
  Report Type: 
  Country: FR (occurrence: FR)
  Receive Date: 20121206
  Receipt Date: 20121210
  Transmission Date: 20130627
  Serious: Yes (Hospitalization, Other)
  Sender: FDA-Public Use
  Company Number: FR-JNJFOC-20121201527

PATIENT
  Age: 75 Year
  Sex: Female
  Weight: 55 kg

DRUGS (5)
  1. XARELTO [Suspect]
     Indication: ATRIAL FIBRILLATION
     Route: 048
     Dates: start: 20120911, end: 201211
  2. XARELTO [Suspect]
     Indication: CEREBROVASCULAR ACCIDENT PROPHYLAXIS
     Route: 048
     Dates: start: 20120911, end: 201211
  3. SOTALEX [Concomitant]
     Indication: HYPERTENSION
     Route: 065
  4. MICARDIS [Concomitant]
     Indication: HYPERTENSION
     Route: 065
  5. LOVENOX [Concomitant]
     Dosage: 0.5 x 2
     Route: 065

REACTIONS (3)
  - Hyphaema [Recovering/Resolving]
  - Vision blurred [Not Recovered/Not Resolved]
  - Angle closure glaucoma [Recovered/Resolved]
